FAERS Safety Report 9920284 (Version 1)
Quarter: 2014Q1

REPORT INFORMATION
  Report Type: Spontaneous
  Country: US (occurrence: US)
  Receive Date: 20140224
  Receipt Date: 20140224
  Transmission Date: 20141002
  Serious: Yes (Life-Threatening, Hospitalization)
  Sender: FDA-Public Use
  Company Number: PHEH2014US003348

PATIENT
  Age: 62 Year
  Sex: Female

DRUGS (1)
  1. DIOVAN [Suspect]
     Dosage: 320 MG, QD
     Dates: start: 201207

REACTIONS (3)
  - Cardiac arrest [Unknown]
  - Swelling [Unknown]
  - Oral herpes [Unknown]
